FAERS Safety Report 13384909 (Version 1)
Quarter: 2017Q1

REPORT INFORMATION
  Report Type: Spontaneous
  Country: US (occurrence: US)
  Receive Date: 20170330
  Receipt Date: 20170330
  Transmission Date: 20170429
  Serious: Yes (Hospitalization)
  Sender: FDA-Public Use
  Company Number: None

PATIENT
  Age: 65 Year
  Sex: Female
  Weight: 105.45 kg

DRUGS (1)
  1. ALLOPURINOL. [Suspect]
     Active Substance: ALLOPURINOL
     Indication: HEPATITIS ACUTE
     Route: 048
     Dates: start: 20160929, end: 20161020

REACTIONS (3)
  - Lactic acidosis [None]
  - Hypertension [None]
  - Hepatitis acute [None]

NARRATIVE: CASE EVENT DATE: 20161102
